FAERS Safety Report 20694394 (Version 1)
Quarter: 2022Q2

REPORT INFORMATION
  Report Type: Spontaneous
  Country: US (occurrence: US)
  Receive Date: 20220411
  Receipt Date: 20220411
  Transmission Date: 20220721
  Serious: No
  Sender: FDA-Public Use
  Company Number: US-ALEMBIC PHARMACUETICALS LIMITED-2022SCAL000118

PATIENT

DRUGS (1)
  1. BIMATOPROST [Suspect]
     Active Substance: BIMATOPROST
     Indication: Madarosis
     Dosage: APPLIED THE MEDICATION ON AN AVERAGE OF ONCE PER WEEK
     Route: 061
     Dates: end: 202203

REACTIONS (7)
  - Eyelids pruritus [Unknown]
  - Eyelid pain [Unknown]
  - Eyelid irritation [Unknown]
  - Condition aggravated [Unknown]
  - Incorrect product administration duration [Unknown]
  - Eyelid skin dryness [Unknown]
  - Erythema of eyelid [Unknown]

NARRATIVE: CASE EVENT DATE: 20220201
